FAERS Safety Report 17273098 (Version 2)
Quarter: 2020Q1

REPORT INFORMATION
  Report Type: Report from Study
  Country: NL (occurrence: NL)
  Receive Date: 20200115
  Receipt Date: 20200128
  Transmission Date: 20200409
  Serious: Yes (Other)
  Sender: FDA-Public Use
  Company Number: NL-MYLANLABS-2020M1004123

PATIENT
  Age: 30 Year
  Sex: Female
  Weight: 78 kg

DRUGS (6)
  1. NAPROXEN. [Concomitant]
     Active Substance: NAPROXEN
     Dosage: 1 DOSAGE FORM, PRN, 2X PER DAY, 1 TABLET WHEN NECESSARY
     Route: 048
  2. GLATIRAMEERACETAAT MYLAN 40 MG/ML [Suspect]
     Active Substance: GLATIRAMER ACETATE
     Indication: MULTIPLE SCLEROSIS
     Dosage: 40 MILLIGRAM, 3XW
     Route: 058
     Dates: start: 20190627
  3. COLECALCIFEROL [Concomitant]
     Active Substance: CHOLECALCIFEROL
     Dosage: 1 DOSAGE FORM, QD, 1X PER DAY, 1 TABLET
     Route: 048
  4. FOLIC ACID. [Concomitant]
     Active Substance: FOLIC ACID
     Dosage: 1 DOSAGE FORM, QD, 1X PER DAY, 1 TABLET
     Route: 048
  5. OXYBUTYNINE                        /00538901/ [Concomitant]
     Active Substance: OXYBUTYNIN
     Dosage: 1 DOSAGE FORM, BID
     Route: 048
  6. NAPROXEN. [Concomitant]
     Active Substance: NAPROXEN
     Dosage: 1 DOSAGE FORM, PRN (2X PER DAY 1 TABLET WHEN NECESSARY)
     Route: 048

REACTIONS (2)
  - Multiple sclerosis [Not Recovered/Not Resolved]
  - Application site induration [Not Recovered/Not Resolved]

NARRATIVE: CASE EVENT DATE: 20191106
